FAERS Safety Report 10370214 (Version 1)
Quarter: 2014Q3

REPORT INFORMATION
  Report Type: Spontaneous
  Country: US (occurrence: US)
  Receive Date: 20140808
  Receipt Date: 20140808
  Transmission Date: 20150326
  Serious: Yes (Death, Other)
  Sender: FDA-Public Use
  Company Number: US-ACCORD-025192

PATIENT
  Age: 62 Year
  Sex: Female

DRUGS (9)
  1. METHOTREXATE [Suspect]
     Active Substance: METHOTREXATE
     Indication: RHEUMATOID ARTHRITIS
  2. GLIPIZIDE. [Concomitant]
     Active Substance: GLIPIZIDE
  3. INSULIN [Concomitant]
     Active Substance: INSULIN NOS
  4. FUROSEMIDE. [Concomitant]
     Active Substance: FUROSEMIDE
  5. IBUPROFEN. [Concomitant]
     Active Substance: IBUPROFEN
  6. ASPIRIN. [Concomitant]
     Active Substance: ASPIRIN
  7. METOLAZONE. [Concomitant]
     Active Substance: METOLAZONE
  8. ESOMEPRAZOLE/ESOMEPRAZOLE MAGNESIUM/ESOMEPRAZOLE SODIUM [Concomitant]
  9. METHYLPREDNISOLONE [Concomitant]
     Active Substance: METHYLPREDNISOLONE

REACTIONS (5)
  - Renal tubular necrosis [Unknown]
  - Pancytopenia [Unknown]
  - Respiratory failure [Unknown]
  - Toxicity to various agents [Fatal]
  - Psoriasis [Fatal]
